FAERS Safety Report 5391538-1 (Version None)
Quarter: 2007Q3

REPORT INFORMATION
  Report Type: 
  Country: None (occurrence: None)
  Receive Date: 20070717
  Receipt Date: 20070704
  Transmission Date: 20080115
  Serious: Yes (Other)
  Sender: FDA-Public Use
  Company Number: 158283ISR

PATIENT
  Age: 42 Year
  Sex: Male

DRUGS (3)
  1. DIAZEPAM [Suspect]
     Indication: PANIC ATTACK
     Dosage: 5 MG
     Dates: start: 20011019, end: 20020704
  2. DIAZEPAM [Suspect]
     Indication: PANIC ATTACK
     Dosage: 5 MG
     Dates: start: 20041204
  3. TEMAZEPAM [Suspect]
     Dosage: 10  MG (10 MG, 1 IN 1 D)
     Dates: start: 20020704

REACTIONS (10)
  - DEPRESSION [None]
  - DIABETIC COMA [None]
  - FALL [None]
  - HALLUCINATION, AUDITORY [None]
  - IRRITABILITY [None]
  - MOOD SWINGS [None]
  - PANIC ATTACK [None]
  - PARANOIA [None]
  - POOR QUALITY SLEEP [None]
  - TYPE 1 DIABETES MELLITUS [None]
